FAERS Safety Report 16906925 (Version 1)
Quarter: 2019Q4

REPORT INFORMATION
  Report Type: Spontaneous
  Country: US (occurrence: US)
  Receive Date: 20191011
  Receipt Date: 20191011
  Transmission Date: 20200122
  Serious: No
  Sender: FDA-Public Use
  Company Number: US-ACCORD-097778

PATIENT
  Sex: Female
  Weight: 124.74 kg

DRUGS (1)
  1. NALTREXONE ACCORD [Suspect]
     Active Substance: NALTREXONE HYDROCHLORIDE
     Indication: BIPOLAR DISORDER
     Dosage: 50 ONCE DAILY AT NIGHT
     Dates: start: 20181107, end: 201811

REACTIONS (3)
  - Alopecia [Not Recovered/Not Resolved]
  - Off label use [Unknown]
  - Drug ineffective [Unknown]
